FAERS Safety Report 8966548 (Version 7)
Quarter: 2015Q1

REPORT INFORMATION
  Report Type: Spontaneous
  Country: US (occurrence: US)
  Receive Date: 20121215
  Receipt Date: 20150213
  Transmission Date: 20150721
  Serious: Yes (Hospitalization, Other)
  Sender: FDA-Public Use
  Company Number: US-009507513-1112USA01469

PATIENT
  Sex: Female
  Weight: 69.39 kg

DRUGS (6)
  1. FOSAMAX [Suspect]
     Active Substance: ALENDRONATE SODIUM
     Indication: OSTEOPOROSIS
     Dosage: UNK
     Route: 048
  2. FOSAMAX PLUS D [Suspect]
     Active Substance: ALENDRONATE SODIUM\CHOLECALCIFEROL
     Indication: OSTEOPOROSIS
     Dosage: UNK
     Route: 048
     Dates: start: 20051006, end: 20080605
  3. FOSAMAX [Suspect]
     Active Substance: ALENDRONATE SODIUM
     Dosage: 70 MG, QW
     Route: 048
     Dates: start: 20010325
  4. ALENDRONATE SODIUM. [Suspect]
     Active Substance: ALENDRONATE SODIUM
     Dosage: 10 MG, QW
     Route: 048
  5. ALENDRONATE SODIUM. [Suspect]
     Active Substance: ALENDRONATE SODIUM
     Indication: OSTEOPOROSIS
     Dosage: 70 MG, UNK
     Route: 048
     Dates: start: 20080819, end: 20101015
  6. FOSAMAX [Suspect]
     Active Substance: ALENDRONATE SODIUM
     Dosage: 10 MG, QD
     Route: 048
     Dates: end: 20010223

REACTIONS (73)
  - Mastectomy [Unknown]
  - Breast cancer [Unknown]
  - Femur fracture [Recovered/Resolved]
  - Body height decreased [Unknown]
  - Weight increased [Unknown]
  - Vestibular disorder [Unknown]
  - Asthenia [Unknown]
  - Pain in extremity [Unknown]
  - Adverse event [Unknown]
  - Vitamin D deficiency [Unknown]
  - Oral surgery [Unknown]
  - Adverse event [Unknown]
  - Elderly [Unknown]
  - Dry mouth [Unknown]
  - Kyphosis [Unknown]
  - Hysterectomy [Unknown]
  - Lordosis [Unknown]
  - Breast operation [Unknown]
  - Intervertebral disc degeneration [Unknown]
  - Bursitis [Unknown]
  - Alopecia [Unknown]
  - Muscle spasms [Unknown]
  - Drug ineffective [Unknown]
  - Femur fracture [Unknown]
  - Breast reconstruction [Unknown]
  - Low turnover osteopathy [Unknown]
  - Balance disorder [Unknown]
  - Depression [Unknown]
  - Muscular weakness [Unknown]
  - Joint dislocation [Unknown]
  - Bursitis [Unknown]
  - Meniscus injury [Unknown]
  - Back pain [Unknown]
  - Breast prosthesis implantation [Unknown]
  - White matter lesion [Unknown]
  - Accident at work [Unknown]
  - Osteopenia [Unknown]
  - Osteoarthritis [Unknown]
  - Hiatus hernia [Unknown]
  - Spinal osteoarthritis [Unknown]
  - Intervertebral disc annular tear [Unknown]
  - Lumbar spinal stenosis [Unknown]
  - Ligament injury [Unknown]
  - Inappropriate schedule of drug administration [Unknown]
  - Back pain [Unknown]
  - Intramedullary rod insertion [Unknown]
  - Patellofemoral pain syndrome [Unknown]
  - Scoliosis [Unknown]
  - Lymphadenectomy [Unknown]
  - Lipoma [Unknown]
  - Gastrooesophageal reflux disease [Unknown]
  - Arthralgia [Unknown]
  - Breast cancer [Unknown]
  - Breast cancer recurrent [Unknown]
  - Cellulitis [Unknown]
  - Seroma [Unknown]
  - Femur fracture [Unknown]
  - Adverse event [Unknown]
  - Hernia [Unknown]
  - Red blood cell sedimentation rate increased [Unknown]
  - Syringomyelia [Unknown]
  - Tinnitus [Unknown]
  - Meniscus injury [Unknown]
  - Abdominoplasty [Unknown]
  - Femur fracture [Unknown]
  - Anxiety [Not Recovered/Not Resolved]
  - Malignant breast lump removal [Unknown]
  - Nervousness [Unknown]
  - Neuropathy peripheral [Unknown]
  - Hepatic cyst [Unknown]
  - Cyst [Unknown]
  - Sinus headache [Unknown]
  - Myalgia [Unknown]

NARRATIVE: CASE EVENT DATE: 1995
